FAERS Safety Report 23245875 (Version 1)
Quarter: 2023Q4

REPORT INFORMATION
  Report Type: Report from Study
  Country: GB (occurrence: GB)
  Receive Date: 20231130
  Receipt Date: 20231130
  Transmission Date: 20240110
  Serious: Yes (Other)
  Sender: FDA-Public Use
  Company Number: GB-002147023-NVSC2023GB253502

PATIENT
  Sex: Male

DRUGS (1)
  1. COSENTYX [Suspect]
     Active Substance: SECUKINUMAB
     Indication: Psoriasis
     Dosage: 300 MG, QMO (ONE PEN) (START DATE 2023)
     Route: 058
     Dates: start: 2023

REACTIONS (3)
  - Lower respiratory tract infection [Unknown]
  - Influenza [Unknown]
  - Psoriasis [Unknown]
